FAERS Safety Report 11359980 (Version 1)
Quarter: 2015Q3

REPORT INFORMATION
  Report Type: Not Available
  Country: US (occurrence: US)
  Receive Date: 20150810
  Receipt Date: 20150810
  Transmission Date: 20151125
  Serious: No
  Sender: FDA-Public Use
  Company Number: US-LUPIN PHARMACEUTICALS INC.-E2B_00003853

PATIENT
  Sex: Female
  Weight: 52.21 kg

DRUGS (1)
  1. LEVONORGESTREL AND ETHINYL ESTRADIOL [Suspect]
     Active Substance: ETHINYL ESTRADIOL\LEVONORGESTREL
     Indication: ORAL CONTRACEPTION
     Dosage: 0.1 MG/0.02 MG
     Dates: start: 201408

REACTIONS (2)
  - Alcohol intolerance [Not Recovered/Not Resolved]
  - Vomiting [Not Recovered/Not Resolved]
